FAERS Safety Report 5613462-9 (Version None)
Quarter: 2008Q1

REPORT INFORMATION
  Report Type: 
  Country: None (occurrence: None)
  Receive Date: 20080129
  Receipt Date: 20080114
  Transmission Date: 20080703
  Serious: Yes (Other)
  Sender: FDA-Public Use
  Company Number: 02100-EUR-08-0018

PATIENT
  Age: 64 Year
  Sex: Female

DRUGS (1)
  1. CILOSTAZOL [Suspect]
     Dosage: ORAL
     Route: 048
     Dates: start: 20070701

REACTIONS (2)
  - CARDIAC FAILURE [None]
  - CARDIOGENIC SHOCK [None]
